FAERS Safety Report 7782687-9 (Version None)
Quarter: 2011Q3

REPORT INFORMATION
  Report Type: 
  Country: None (occurrence: None)
  Receive Date: 20110928
  Receipt Date: 20110923
  Transmission Date: 20111222
  Serious: Yes (Hospitalization)
  Sender: FDA-Public Use
  Company Number: PHHY2011DE82429

PATIENT
  Sex: Male

DRUGS (5)
  1. BACLOFEN [Concomitant]
     Indication: MUSCLE SPASTICITY
     Dosage: 25 MG, QD
     Route: 048
     Dates: start: 20110201
  2. MIRTAZAPINE [Concomitant]
     Indication: SLEEP DISORDER
     Dosage: 15 MG, QD
     Dates: start: 20101001
  3. METOPROLOL SUCCINATE [Concomitant]
     Indication: HYPERTENSION
     Dosage: 0.5 DF, UNK
     Route: 048
     Dates: start: 20100201
  4. EXTAVIA [Suspect]
     Indication: MULTIPLE SCLEROSIS
     Dosage: 250 UG, QOD
     Route: 058
     Dates: start: 20110301
  5. RAMIPRIL [Concomitant]
     Indication: HYPERTENSION
     Dosage: 5 MG, BID
     Route: 048
     Dates: start: 20100201

REACTIONS (3)
  - FALL [None]
  - DIZZINESS [None]
  - LACERATION [None]
